FAERS Safety Report 10066194 (Version 1)
Quarter: 2014Q2

REPORT INFORMATION
  Report Type: Report from Study
  Country: US (occurrence: US)
  Receive Date: 20140408
  Receipt Date: 20140408
  Transmission Date: 20141212
  Serious: Yes (Hospitalization, Other)
  Sender: FDA-Public Use
  Company Number: US-BAYER-2014-049739

PATIENT
  Age: 47 Year
  Sex: Male

DRUGS (7)
  1. ASPIRIN [Suspect]
     Indication: CORONARY ARTERIAL STENT INSERTION
  2. ASPIRIN [Interacting]
     Indication: CORONARY ARTERIAL STENT INSERTION
  3. CLOPIDOGREL [Interacting]
     Indication: CORONARY ARTERIAL STENT INSERTION
  4. CLOPIDOGREL [Interacting]
     Indication: ANTIPLATELET THERAPY
  5. ANTIVENOM [Concomitant]
     Indication: SNAKE BITE
     Dosage: 12 VIALS FOR INITIAL CONTROL
  6. ANTIVENOM [Concomitant]
     Indication: SNAKE BITE
     Dosage: 6 VIALS FOR MAINTENANCE DOSING
  7. ANTIVENOM [Concomitant]
     Indication: SNAKE BITE
     Dosage: ADDITIONAL DOSES

REACTIONS (4)
  - Coagulopathy [Recovered/Resolved]
  - Haemorrhage [Recovered/Resolved]
  - Retroperitoneal haematoma [Recovered/Resolved]
  - Drug interaction [None]
